FAERS Safety Report 9688791 (Version 1)
Quarter: 2013Q4

REPORT INFORMATION
  Report Type: Spontaneous
  Country: US (occurrence: US)
  Receive Date: 20131114
  Receipt Date: 20131114
  Transmission Date: 20140711
  Serious: Yes (Hospitalization)
  Sender: FDA-Public Use
  Company Number: US-ELI_LILLY_AND_COMPANY-US201311001298

PATIENT
  Age: 52 Year
  Sex: Female

DRUGS (3)
  1. HUMALOG LISPRO [Suspect]
     Indication: TYPE 2 DIABETES MELLITUS
     Dosage: 6 U, EACH MORNING
     Route: 065
  2. HUMALOG LISPRO [Suspect]
     Dosage: 8 U, QD
     Route: 065
  3. HUMALOG LISPRO [Suspect]
     Dosage: 9 U, EACH EVENING
     Route: 065

REACTIONS (2)
  - Cardiac disorder [Unknown]
  - Drug dose omission [Unknown]
